FAERS Safety Report 22652957 (Version 1)
Quarter: 2023Q2

REPORT INFORMATION
  Report Type: Spontaneous
  Country: FR (occurrence: FR)
  Receive Date: 20230629
  Receipt Date: 20230629
  Transmission Date: 20230721
  Serious: Yes (Other)
  Sender: FDA-Public Use
  Company Number: None

PATIENT
  Age: 69 Year
  Sex: Female
  Weight: 65.3 kg

DRUGS (11)
  1. LOVENOX [Suspect]
     Active Substance: ENOXAPARIN SODIUM
     Indication: Atrial fibrillation
     Dosage: 4000 IU, QD
     Route: 058
     Dates: start: 20230323, end: 20230324
  2. LOVENOX [Suspect]
     Active Substance: ENOXAPARIN SODIUM
     Dosage: 12000 IU, QD
     Route: 058
     Dates: start: 20230325, end: 20230326
  3. MELATONIN [Concomitant]
     Active Substance: MELATONIN
     Indication: Sleep disorder
     Dosage: 1 DF, QD
     Route: 048
     Dates: start: 20230323, end: 20230331
  4. MAGNESIUM PIDOLATE [Concomitant]
     Active Substance: MAGNESIUM PIDOLATE
     Indication: Hypomagnesaemia
     Dosage: 3 DF, QD
     Route: 048
     Dates: start: 20230325, end: 20230331
  5. LINEZOLID [Concomitant]
     Active Substance: LINEZOLID
     Indication: Acinetobacter bacteraemia
     Dosage: 2 DF, QD
     Route: 048
     Dates: start: 20230323, end: 20230329
  6. BISOPROLOL FUMARATE [Concomitant]
     Active Substance: BISOPROLOL FUMARATE
     Indication: Atrial fibrillation
     Dosage: 10 MG, QD
     Route: 048
     Dates: start: 20230323, end: 20230331
  7. URSODIOL [Concomitant]
     Active Substance: URSODIOL
     Indication: Primary biliary cholangitis
     Dosage: 4 DF, QD
     Route: 048
     Dates: start: 20230323, end: 20230331
  8. ALDACTONE [Concomitant]
     Active Substance: SPIRONOLACTONE
     Indication: Hypertension
     Dosage: 1 DF, QD
     Route: 048
     Dates: start: 20230324, end: 20230330
  9. POTASSIUM CHLORIDE [Concomitant]
     Active Substance: POTASSIUM CHLORIDE
     Indication: Hypokalaemia
     Dosage: 2 DF, QD
     Route: 048
     Dates: start: 20230324, end: 20230329
  10. PIPERACILLIN SODIUM\TAZOBACTAM SODIUM [Concomitant]
     Active Substance: PIPERACILLIN SODIUM\TAZOBACTAM SODIUM
     Indication: Acinetobacter bacteraemia
     Dosage: 12 G, QD
     Route: 041
     Dates: start: 20230323, end: 20230330
  11. FUROSEMIDE [Concomitant]
     Active Substance: FUROSEMIDE
     Indication: Hypertension
     Dosage: 1 DF, QD
     Route: 048
     Dates: start: 20230324, end: 20230329

REACTIONS (1)
  - Haematoma muscle [Recovering/Resolving]

NARRATIVE: CASE EVENT DATE: 20230326
